FAERS Safety Report 9341293 (Version 2)
Quarter: 2013Q4

REPORT INFORMATION
  Report Type: Spontaneous
  Country: GB (occurrence: GB)
  Receive Date: 20130611
  Receipt Date: 20131106
  Transmission Date: 20140711
  Serious: Yes (Hospitalization)
  Sender: FDA-Public Use
  Company Number: GB-009507513-1306GBR002588

PATIENT
  Age: 79 Year
  Sex: Male

DRUGS (5)
  1. MIRTAZAPINE [Suspect]
     Dosage: 15 MG, QD
     Route: 048
     Dates: start: 20130520, end: 20130523
  2. CHOLECALCIFEROL [Concomitant]
  3. FERROUS FUMARATE [Concomitant]
  4. HYDROXOCOBALAMIN [Concomitant]
  5. PREDNISOLONE [Concomitant]

REACTIONS (1)
  - Cognitive disorder [Not Recovered/Not Resolved]
